FAERS Safety Report 16793687 (Version 1)
Quarter: 2019Q3

REPORT INFORMATION
  Report Type: Spontaneous
  Country: DK (occurrence: DK)
  Receive Date: 20190911
  Receipt Date: 20190911
  Transmission Date: 20191005
  Serious: Yes (Hospitalization, Other)
  Sender: FDA-Public Use
  Company Number: DK-ROCHE-2400716

PATIENT
  Age: 74 Year
  Sex: Female

DRUGS (18)
  1. IBUPROFEN. [Concomitant]
     Active Substance: IBUPROFEN
     Indication: PAIN
     Dosage: 400 MG,AS NECESSARY
     Route: 048
     Dates: start: 20180826, end: 20180920
  2. QUETIAPINE. [Concomitant]
     Active Substance: QUETIAPINE
     Indication: SCHIZOPHRENIA
     Route: 048
     Dates: start: 20160424
  3. QUININE [Concomitant]
     Active Substance: QUININE
     Indication: MUSCLE SPASMS
     Route: 048
     Dates: start: 20160123, end: 20180920
  4. ZUCLOPENTHIXOL [Concomitant]
     Active Substance: ZUCLOPENTHIXOL
     Indication: MENTAL DISORDER
     Route: 048
     Dates: start: 20141001
  5. FENTANYL. [Concomitant]
     Active Substance: FENTANYL
     Indication: PAIN
     Route: 062
     Dates: start: 20160711
  6. ZOMETA [Suspect]
     Active Substance: ZOLEDRONIC ACID
     Indication: PRODUCT USED FOR UNKNOWN INDICATION
     Route: 042
     Dates: start: 20150427, end: 20150924
  7. PARACETAMOL [Concomitant]
     Active Substance: ACETAMINOPHEN
     Indication: PAIN
     Route: 048
     Dates: start: 20160920
  8. DOMPERIDONE [Concomitant]
     Active Substance: DOMPERIDONE
     Indication: BREAST CANCER
     Dosage: AS NECESSARY
     Route: 048
     Dates: start: 20161210
  9. MACROGOL [Concomitant]
     Active Substance: POLYETHYLENE GLYCOLS
     Indication: CONSTIPATION
     Route: 048
     Dates: start: 20160920
  10. BONDRONAT [IBANDRONATE SODIUM] [Suspect]
     Active Substance: IBANDRONATE SODIUM
     Indication: MUSCULOSKELETAL DISORDER
     Route: 048
     Dates: start: 20160222
  11. MELATONIN [Concomitant]
     Active Substance: MELATONIN
     Indication: INSOMNIA
     Route: 048
     Dates: start: 20171026, end: 20180310
  12. VITAMIN D [ERGOCALCIFEROL] [Concomitant]
     Active Substance: ERGOCALCIFEROL
     Indication: VITAMIN SUPPLEMENTATION
     Route: 048
     Dates: start: 20160608
  13. GABAPENTIN. [Concomitant]
     Active Substance: GABAPENTIN
     Indication: NEURALGIA
     Route: 048
     Dates: start: 20160922
  14. RAMIPRIL. [Concomitant]
     Active Substance: RAMIPRIL
     Indication: CARDIAC FAILURE
     Route: 048
     Dates: start: 20150706
  15. CARVEDILOL. [Concomitant]
     Active Substance: CARVEDILOL
     Indication: CARDIAC DISORDER
     Route: 065
     Dates: start: 20150717
  16. OMEPRAZOLE. [Concomitant]
     Active Substance: OMEPRAZOLE
     Indication: GASTROOESOPHAGEAL REFLUX DISEASE
     Route: 048
     Dates: start: 20160912
  17. ALENDRONIC ACID [Suspect]
     Active Substance: ALENDRONIC ACID
     Indication: MUSCULOSKELETAL DISORDER
     Route: 048
     Dates: start: 20161215, end: 20161222
  18. XGEVA [Suspect]
     Active Substance: DENOSUMAB
     Indication: BREAST CANCER METASTATIC
     Route: 058
     Dates: start: 20150924, end: 20151116

REACTIONS (6)
  - Pain in jaw [Recovered/Resolved]
  - Oral cavity fistula [Recovered/Resolved]
  - Osteonecrosis of jaw [Recovered/Resolved]
  - Exostosis of jaw [Recovered/Resolved]
  - Exposed bone in jaw [Recovered/Resolved]
  - Sequestrectomy [Recovered/Resolved]

NARRATIVE: CASE EVENT DATE: 2018
